FAERS Safety Report 10094277 (Version 2)
Quarter: 2014Q2

REPORT INFORMATION
  Report Type: Spontaneous
  Country: CA (occurrence: CA)
  Receive Date: 20140422
  Receipt Date: 20140428
  Transmission Date: 20141212
  Serious: Yes (Other)
  Sender: FDA-Public Use
  Company Number: CA-GE HEALTHCARE MEDICAL DIAGNOSTICS-OMPQ-PR-1404S-0384

PATIENT
  Age: 90 Year
  Sex: Female
  Weight: 65.83 kg

DRUGS (5)
  1. OMNIPAQUE [Suspect]
     Indication: LUNG CARCINOMA CELL TYPE UNSPECIFIED STAGE IV
     Route: 042
     Dates: start: 20140409, end: 20140409
  2. OMNIPAQUE [Suspect]
     Indication: CHEST PAIN
  3. OMNIPAQUE [Suspect]
     Indication: DYSPNOEA
  4. OMNIPAQUE [Suspect]
     Indication: PULMONARY EMBOLISM
  5. OMNIPAQUE [Suspect]
     Indication: DIAGNOSTIC PROCEDURE

REACTIONS (5)
  - Swelling face [Recovered/Resolved]
  - Chest discomfort [Recovered/Resolved]
  - Dyspnoea [Recovered/Resolved]
  - Tachycardia [Recovered/Resolved]
  - Cough [Recovered/Resolved]
